FAERS Safety Report 5329714-6 (Version None)
Quarter: 2007Q2

REPORT INFORMATION
  Report Type: 
  Country: None (occurrence: None)
  Receive Date: 20070515
  Receipt Date: 20070504
  Transmission Date: 20071010
  Serious: Yes (Death)
  Sender: FDA-Public Use
  Company Number: MEDI-0004281

PATIENT
  Age: 15 Month
  Sex: Male
  Weight: 6.34 kg

DRUGS (1)
  1. SYNAGIS [Suspect]
     Indication: ANTIVIRAL PROPHYLAXIS
     Dosage: INTRAMUSCULAR
     Route: 030

REACTIONS (2)
  - CARDIAC OPERATION [None]
  - SUDDEN DEATH [None]
